FAERS Safety Report 8188927-9 (Version None)
Quarter: 2012Q1

REPORT INFORMATION
  Report Type: 
  Country: None (occurrence: None)
  Receive Date: 20120306
  Receipt Date: 20120228
  Transmission Date: 20120608
  Serious: Yes (Hospitalization)
  Sender: FDA-Public Use
  Company Number: FR-ROCHE-1044283

PATIENT
  Sex: Male

DRUGS (6)
  1. MESNA [Concomitant]
     Route: 042
  2. CYCLOPHOSPHAMIDE [Suspect]
     Indication: PRODUCT USED FOR UNKNOWN INDICATION
     Dosage: 6 BOLUS
     Route: 042
     Dates: end: 20111208
  3. CYCLOPHOSPHAMIDE [Suspect]
     Dates: start: 20100501, end: 20111101
  4. IMURAN [Concomitant]
  5. MABTHERA [Suspect]
     Indication: PRODUCT USED FOR UNKNOWN INDICATION
     Route: 042
     Dates: start: 20111209, end: 20111227
  6. PREDNISONE TAB [Concomitant]

REACTIONS (1)
  - MENINGITIS ASEPTIC [None]
